FAERS Safety Report 23297038 (Version 2)
Quarter: 2024Q1

REPORT INFORMATION
  Report Type: Spontaneous
  Country: IT (occurrence: IT)
  Receive Date: 20231214
  Receipt Date: 20240108
  Transmission Date: 20240410
  Serious: Yes (Life-Threatening, Other)
  Sender: FDA-Public Use
  Company Number: None

PATIENT
  Age: 37 Year
  Sex: Female

DRUGS (3)
  1. MEDROL [Suspect]
     Active Substance: METHYLPREDNISOLONE
     Indication: Intentional self-injury
     Dosage: 4 MG
     Route: 048
     Dates: start: 20231014, end: 20231014
  2. AUGMENTIN [Suspect]
     Active Substance: AMOXICILLIN\CLAVULANATE POTASSIUM
     Indication: Intentional self-injury
     Dosage: 1 G (875+125 MG)
     Route: 048
     Dates: start: 20231014, end: 20231014
  3. DIAZEPAM [Suspect]
     Active Substance: DIAZEPAM
     Indication: Intentional self-injury
     Dosage: 25 DROP (5 MG/ML)
     Route: 048
     Dates: start: 20231014, end: 20231014

REACTIONS (5)
  - Drug abuse [Recovered/Resolved]
  - Toxicity to various agents [Recovered/Resolved]
  - Vomiting [Recovered/Resolved]
  - Nausea [Recovered/Resolved]
  - Off label use [Unknown]

NARRATIVE: CASE EVENT DATE: 20231014
